FAERS Safety Report 4281577-6 (Version None)
Quarter: 2004Q1

REPORT INFORMATION
  Report Type: 
  Country: None (occurrence: None)
  Receive Date: 20040108
  Receipt Date: 20031106
  Transmission Date: 20041129
  Serious: Yes (Hospitalization, Other)
  Sender: FDA-Public Use
  Company Number: HQWYE859807NOV03

PATIENT
  Age: 52 Year
  Sex: Female

DRUGS (2)
  1. PREMPRO [Suspect]
     Indication: OSTEOPOROSIS
     Dosage: 1 TABLET DAILY; ORAL
     Route: 048
     Dates: start: 19970101, end: 20020417
  2. PREMPRO [Suspect]
     Indication: PROPHYLAXIS
     Dosage: 1 TABLET DAILY; ORAL
     Route: 048
     Dates: start: 19970101, end: 20020417

REACTIONS (2)
  - BREAST CANCER [None]
  - BREAST PAIN [None]
